FAERS Safety Report 25867541 (Version 2)
Quarter: 2025Q4

REPORT INFORMATION
  Report Type: Spontaneous
  Country: EU (occurrence: EU)
  Receive Date: 20251001
  Receipt Date: 20251110
  Transmission Date: 20260117
  Serious: Yes (Death)
  Sender: TEVA
  Company Number: EU-TEVA-VS-3376058

PATIENT
  Age: 40 Year
  Sex: Male

DRUGS (10)
  1. TESTOSTERONE [Suspect]
     Active Substance: TESTOSTERONE
     Indication: Drug abuse
     Route: 065
  2. LEVOCETIRIZINE DIHYDROCHLORIDE [Concomitant]
     Active Substance: LEVOCETIRIZINE DIHYDROCHLORIDE
     Indication: Product used for unknown indication
     Route: 065
  3. OXANDROLONE [Concomitant]
     Active Substance: OXANDROLONE
     Indication: Product used for unknown indication
     Route: 065
  4. ANDROSTENEDIONE [Suspect]
     Active Substance: ANDROSTENEDIONE
     Indication: Drug abuse
     Route: 065
  5. NANDROLONE [Concomitant]
     Active Substance: NANDROLONE
     Indication: Product used for unknown indication
     Route: 065
  6. PRASTERONE [Suspect]
     Active Substance: PRASTERONE
     Indication: Drug abuse
     Route: 065
  7. BOLDENONE [Suspect]
     Active Substance: BOLDENONE
     Indication: Drug abuse
     Route: 065
  8. ACETAMINOPHEN [Concomitant]
     Active Substance: ACETAMINOPHEN
     Indication: Product used for unknown indication
     Route: 065
  9. MESTEROLONE [Concomitant]
     Active Substance: MESTEROLONE
     Indication: Product used for unknown indication
     Route: 065
  10. CETIRIZINE [Concomitant]
     Active Substance: CETIRIZINE HYDROCHLORIDE
     Indication: Product used for unknown indication
     Route: 065

REACTIONS (3)
  - Myocardial ischaemia [Fatal]
  - Cardiac death [Fatal]
  - Drug abuse [Fatal]
